FAERS Safety Report 4531150-7 (Version None)
Quarter: 2004Q4

REPORT INFORMATION
  Report Type: 
  Country: None (occurrence: None)
  Receive Date: 20041216
  Receipt Date: 20041210
  Transmission Date: 20050328
  Serious: No
  Sender: FDA-Public Use
  Company Number: 2004AC00945

PATIENT
  Age: 78 Year
  Sex: Male

DRUGS (3)
  1. ATACAND [Suspect]
     Indication: ESSENTIAL HYPERTENSION
     Dosage: 8 MG DAILY PO
     Route: 048
     Dates: start: 20040617, end: 20040907
  2. ATENOLOLUM [Concomitant]
  3. HYDROCHLOROTHIAZIDUM [Concomitant]

REACTIONS (1)
  - HALLUCINATION, AUDITORY [None]
